FAERS Safety Report 12171250 (Version 1)
Quarter: 2016Q1

REPORT INFORMATION
  Report Type: Spontaneous
  Country: US (occurrence: None)
  Receive Date: 20160310
  Receipt Date: 20160310
  Transmission Date: 20160526
  Serious: Yes (Other)
  Sender: FDA-Public Use
  Company Number: None

PATIENT
  Age: 55 Year
  Sex: Female
  Weight: 63.5 kg

DRUGS (8)
  1. ATENOLOL. [Concomitant]
     Active Substance: ATENOLOL
  2. HYDREA [Concomitant]
     Active Substance: HYDROXYUREA
  3. ELIQUIS [Suspect]
     Active Substance: APIXABAN
     Indication: PULMONARY EMBOLISM
     Dosage: 1 TWICE DAILY TAKEN BY MOUTH
     Route: 048
  4. ATIVAN [Concomitant]
     Active Substance: LORAZEPAM
  5. MULTI-VITAMIN [Concomitant]
     Active Substance: .ALPHA.-TOCOPHEROL ACETATE, DL-\ASCORBIC ACID\CYANOCOBALAMIN\FLUORIDE ION\FOLIC ACID\NIACIN\PYRIDOXINE\RIBOFLAVIN\THIAMINE\VITAMIN A\VITAMIN D
  6. ACIDOPHILIS [Concomitant]
     Active Substance: LACTOBACILLUS ACIDOPHILUS
  7. CLARITON [Concomitant]
     Active Substance: UNSPECIFIED INGREDIENT
  8. TEMAXAPAM [Concomitant]

REACTIONS (1)
  - Vitreous detachment [None]

NARRATIVE: CASE EVENT DATE: 20160301
